FAERS Safety Report 16172354 (Version 2)
Quarter: 2019Q2

REPORT INFORMATION
  Report Type: Spontaneous
  Country: NL (occurrence: NL)
  Receive Date: 20190409
  Receipt Date: 20190409
  Transmission Date: 20190711
  Serious: Yes (Hospitalization)
  Sender: FDA-Public Use
  Company Number: NL-TEVA-2019-NL-1033956

PATIENT
  Age: 53 Year
  Sex: Male
  Weight: 95 kg

DRUGS (6)
  1. TAVEGYL 1MG [Concomitant]
     Dosage: 2 MILLIGRAM DAILY; 2DD1
  2. AMOXICILLINE TABLET, 500 MG (MILLIGRAM) [Suspect]
     Active Substance: AMOXICILLIN
     Indication: NASOPHARYNGITIS
     Dosage: 1500 MILLIGRAM DAILY; 3X PER DAY 1
     Dates: start: 20190222, end: 20190301
  3. ASCAL 100MG [Concomitant]
  4. OMEPRAZOL 20MG [Concomitant]
  5. CRESTOR [Concomitant]
     Active Substance: ROSUVASTATIN CALCIUM
  6. LATONOPROST-TIMOLOL OOGDRUPPELS [Concomitant]

REACTIONS (7)
  - Urticaria [Recovering/Resolving]
  - Swelling of eyelid [Recovering/Resolving]
  - Peripheral swelling [Recovering/Resolving]
  - Pyrexia [Recovering/Resolving]
  - Lip swelling [Recovering/Resolving]
  - Syncope [Recovering/Resolving]
  - Chest pain [Recovering/Resolving]

NARRATIVE: CASE EVENT DATE: 20190224
